FAERS Safety Report 23526110 (Version 1)
Quarter: 2024Q1

REPORT INFORMATION
  Report Type: Spontaneous
  Country: JP (occurrence: JP)
  Receive Date: 20240215
  Receipt Date: 20240215
  Transmission Date: 20240409
  Serious: Yes (Hospitalization)
  Sender: FDA-Public Use
  Company Number: JP-CHUGAI-2024004130AA

PATIENT
  Age: 5 Decade
  Sex: Male

DRUGS (3)
  1. CAPECITABINE [Suspect]
     Active Substance: CAPECITABINE
     Indication: Rectal cancer
     Dosage: CONTINUED FROM 10 MONTHS AFTER SURGERY
     Route: 048
  2. AVASTIN [Suspect]
     Active Substance: BEVACIZUMAB
     Indication: Rectal cancer
     Dosage: CONTINUED FROM 10 MONTHS AFTER SURGERY
  3. OXALIPLATIN [Suspect]
     Active Substance: OXALIPLATIN
     Indication: Rectal cancer
     Dosage: CONTINUED FROM 10 MONTHS AFTER SURGERY

REACTIONS (2)
  - Bleeding varicose vein [Unknown]
  - Platelet count decreased [Unknown]
